FAERS Safety Report 12582766 (Version 1)
Quarter: 2016Q3

REPORT INFORMATION
  Report Type: Spontaneous
  Country: US (occurrence: US)
  Receive Date: 20160722
  Receipt Date: 20160722
  Transmission Date: 20161109
  Serious: No
  Sender: FDA-Public Use
  Company Number: US-FRI-1000084402

PATIENT
  Age: 79 Year
  Sex: Female
  Weight: 57.15 kg

DRUGS (2)
  1. ARICEPT [Concomitant]
     Active Substance: DONEPEZIL HYDROCHLORIDE
     Indication: MEMORY IMPAIRMENT
     Dosage: 10MG
     Route: 048
     Dates: start: 2015
  2. NAMENDA XR [Suspect]
     Active Substance: MEMANTINE HYDROCHLORIDE
     Indication: AMNESIA
     Dosage: 28MG
     Route: 048
     Dates: start: 20160426

REACTIONS (3)
  - Off label use [Not Recovered/Not Resolved]
  - Dizziness [Recovered/Resolved]
  - Drug dose omission [Recovered/Resolved]

NARRATIVE: CASE EVENT DATE: 20160426
